FAERS Safety Report 17494533 (Version 1)
Quarter: 2020Q1

REPORT INFORMATION
  Report Type: Spontaneous
  Country: US (occurrence: US)
  Receive Date: 20200303
  Receipt Date: 20200303
  Transmission Date: 20200409
  Serious: No
  Sender: FDA-Public Use
  Company Number: US-AMNEAL PHARMACEUTICALS-2019-AMRX-02339

PATIENT
  Age: 66 Year
  Sex: Female
  Weight: 63 kg

DRUGS (8)
  1. LEVOTHYROXINE. [Concomitant]
     Active Substance: LEVOTHYROXINE
     Indication: THYROID DISORDER
     Dosage: 1 TABLETS, DAILY
     Route: 065
  2. GABAPENTIN. [Concomitant]
     Active Substance: GABAPENTIN
     Indication: NEURALGIA
     Dosage: 300 MILLIGRAM, BEDTIME
     Route: 065
  3. TIZANIDINE. [Concomitant]
     Active Substance: TIZANIDINE
     Indication: PRODUCT USED FOR UNKNOWN INDICATION
     Dosage: QUARTER TABLET 4 TIMES DAILY, 4 WHOLE TABLETS AT BEDTIME
     Route: 065
  4. RYTARY [Suspect]
     Active Substance: CARBIDOPA\LEVODOPA
     Dosage: 1 CAPSULES, EVERY HOUR, FOR 12 HOURS
     Route: 048
     Dates: start: 2019
  5. ALLOPURINOL. [Concomitant]
     Active Substance: ALLOPURINOL
     Indication: GOUT
     Dosage: 1 TABLETS, DAILY
     Route: 065
  6. POTASSIUM [Concomitant]
     Active Substance: POTASSIUM
     Indication: RENAL DISORDER
     Dosage: 6 TABLETS, DAILY
     Route: 065
  7. RYTARY [Suspect]
     Active Substance: CARBIDOPA\LEVODOPA
     Indication: PARKINSON^S DISEASE
     Dosage: 4 CAPSULES, TID
     Route: 048
     Dates: start: 201909, end: 2019
  8. SPIRONOLACTONE. [Concomitant]
     Active Substance: SPIRONOLACTONE
     Indication: PRODUCT USED FOR UNKNOWN INDICATION
     Dosage: HALF AND WHOLE TABLET DAILY
     Route: 065

REACTIONS (2)
  - Tremor [Recovering/Resolving]
  - Dyskinesia [Recovering/Resolving]

NARRATIVE: CASE EVENT DATE: 201909
